FAERS Safety Report 4365299-9 (Version None)
Quarter: 2004Q2

REPORT INFORMATION
  Report Type: 
  Country: None (occurrence: None)
  Receive Date: 20040521
  Receipt Date: 20040329
  Transmission Date: 20050107
  Serious: Yes (Death)
  Sender: FDA-Public Use
  Company Number: 2003-BP-05142PF

PATIENT
  Age: 87 Year
  Sex: Female

DRUGS (4)
  1. SPIRIVA [Suspect]
     Indication: CHRONIC OBSTRUCTIVE AIRWAYS DISEASE
     Dosage: 18 MCG (18 MCG, 1 PUFF DAILY)
     Route: 045
     Dates: start: 20030520
  2. ASPIRIN [Concomitant]
  3. DIOVAN [Concomitant]
  4. ACTONEL [Concomitant]

REACTIONS (1)
  - CARDIAC ARREST [None]
